APPROVED DRUG PRODUCT: TIPIRACIL HYDROCHLORIDE AND TRIFLURIDINE
Active Ingredient: TIPIRACIL HYDROCHLORIDE; TRIFLURIDINE
Strength: EQ 6.14MG BASE;15MG
Dosage Form/Route: TABLET;ORAL
Application: A214008 | Product #001 | TE Code: AB
Applicant: NATCO PHARMA LTD
Approved: Jun 13, 2023 | RLD: No | RS: No | Type: RX